FAERS Safety Report 8560992-6 (Version None)
Quarter: 2012Q3

REPORT INFORMATION
  Report Type: 
  Country: None (occurrence: None)
  Receive Date: 20120802
  Receipt Date: 20120724
  Transmission Date: 20120928
  Serious: Yes (Hospitalization, Other)
  Sender: FDA-Public Use
  Company Number: US-ASTRAZENECA-2010SE59108

PATIENT
  Age: 45 Year
  Sex: Male

DRUGS (4)
  1. NORCO [Concomitant]
  2. NEXIUM [Suspect]
     Route: 048
  3. MORPHINE SULFATE [Concomitant]
  4. CRESTOR [Suspect]
     Route: 048

REACTIONS (16)
  - CHRONIC OBSTRUCTIVE PULMONARY DISEASE [None]
  - DEHYDRATION [None]
  - TOOTH INFECTION [None]
  - DYSPNOEA [None]
  - SUPRAVENTRICULAR TACHYCARDIA [None]
  - UPPER RESPIRATORY TRACT INFECTION [None]
  - PHARYNGEAL OEDEMA [None]
  - BLOOD POTASSIUM DECREASED [None]
  - OPTIC NERVE NEOPLASM [None]
  - HEART RATE INCREASED [None]
  - SLEEP APNOEA SYNDROME [None]
  - TOOTH IMPACTED [None]
  - TACHYCARDIA [None]
  - LOCALISED OEDEMA [None]
  - BACK INJURY [None]
  - ABDOMINAL PAIN LOWER [None]
